FAERS Safety Report 5033659-9 (Version None)
Quarter: 2006Q2

REPORT INFORMATION
  Report Type: 
  Country: None (occurrence: None)
  Receive Date: 20060623
  Receipt Date: 20060619
  Transmission Date: 20061013
  Serious: Yes (Hospitalization)
  Sender: FDA-Public Use
  Company Number: US-GLAXOSMITHKLINE-A0609563A

PATIENT
  Sex: Female

DRUGS (7)
  1. FLONASE [Suspect]
     Dosage: 2SPR PER DAY
     Route: 045
     Dates: start: 20050101
  2. CARTIA XT [Suspect]
     Route: 065
     Dates: end: 20060601
  3. DICYCLOMINE [Suspect]
     Indication: PAIN
     Dosage: 10MG UNKNOWN
     Route: 048
  4. SYNTHROID [Concomitant]
  5. FIBER [Concomitant]
  6. LOMOTIL [Concomitant]
  7. MIDRIN [Concomitant]

REACTIONS (5)
  - CARDIAC DISORDER [None]
  - DEHYDRATION [None]
  - DIVERTICULITIS [None]
  - FATIGUE [None]
  - PAIN [None]
